FAERS Safety Report 9609242 (Version 2)
Quarter: 2013Q4

REPORT INFORMATION
  Report Type: Spontaneous
  Country: FR (occurrence: None)
  Receive Date: 20131007
  Receipt Date: 20131018
  Transmission Date: 20140711
  Serious: Yes (Hospitalization)
  Sender: FDA-Public Use
  Company Number: 2013277703

PATIENT
  Age: 81 Year
  Sex: Male

DRUGS (12)
  1. ZYVOXID [Suspect]
     Indication: OSTEITIS
     Dosage: 600 MG, 2X/DAY, ORAL
     Route: 048
     Dates: start: 20130723, end: 20130822
  2. LEDERFOLINE [Suspect]
     Indication: OSTEITIS
     Dosage: 5 MG, DAILY, ORAL
     Route: 048
     Dates: start: 20130724
  3. FRAGMINE (DALTEPARIN SODIUM) SOLUTION FOR INJECTION [Suspect]
     Indication: OSTEITIS
     Dosage: 5000 IU, DAILY, SUBCUTANEOUS
     Route: 058
     Dates: start: 20130724
  4. TAVANIC [Suspect]
     Indication: OSTEITIS
     Dosage: 500 MG, DAILY, ORAL
     Route: 048
     Dates: start: 20130723, end: 20130826
  5. BACTRIM FORTE [Suspect]
     Indication: OSTEITIS
     Dosage: 2 DF, DAILY, ORAL
     Route: 048
     Dates: start: 20130723, end: 20130826
  6. EUPANTOL [Suspect]
     Indication: PRODUCT USED FOR UNKNOWN INDICATION
     Dosage: 20 MG, DAILY, ORAL
     Route: 048
     Dates: start: 20130724
  7. PARACETAMOL (PARACETAMOL) [Concomitant]
  8. KARDEGIC (ACETYLSALICYLIC LYSINE) [Concomitant]
  9. PYOSTACINE (PRISTINAMYCIN) [Concomitant]
  10. TRAMADOL - SLOW RELEASE (TRAMADOL HYDROCHLORIDE) [Concomitant]
  11. NASACORT (TRIAMCINOLONE ACETONIDE) [Concomitant]
  12. CRESTOR (ROSUVASTATIN) [Concomitant]

REACTIONS (2)
  - Anaemia [None]
  - Lymphopenia [None]
